FAERS Safety Report 20569759 (Version 2)
Quarter: 2022Q2

REPORT INFORMATION
  Report Type: Spontaneous
  Country: US (occurrence: US)
  Receive Date: 20220309
  Receipt Date: 20220507
  Transmission Date: 20220721
  Serious: No
  Sender: FDA-Public Use
  Company Number: US-SA-SAC20220302000111

PATIENT
  Age: 59 Year
  Sex: Female

DRUGS (12)
  1. DUPIXENT [Suspect]
     Active Substance: DUPILUMAB
     Indication: Dermatitis atopic
     Dosage: 300 MG, QOW
     Route: 058
     Dates: start: 20220128
  2. TACROLIMUS [Concomitant]
     Active Substance: TACROLIMUS
  3. CLOBETASOL [Concomitant]
     Active Substance: CLOBETASOL
  4. DESOXIMETASONE [Concomitant]
     Active Substance: DESOXIMETASONE
  5. CLARITHROMYCIN [Concomitant]
     Active Substance: CLARITHROMYCIN
  6. IRON [Concomitant]
     Active Substance: IRON
  7. LATANOPROST [Concomitant]
     Active Substance: LATANOPROST
  8. TIMOLOL [Concomitant]
     Active Substance: TIMOLOL
  9. VITAMINS NOS [Concomitant]
     Active Substance: VITAMINS
  10. OMEGA-3 FATTY ACIDS [Concomitant]
     Active Substance: OMEGA-3 FATTY ACIDS
  11. PROBIOTICS NOS [Concomitant]
     Active Substance: PROBIOTICS NOS
  12. TIMOLOL MALEATE [Concomitant]
     Active Substance: TIMOLOL MALEATE

REACTIONS (5)
  - Eczema [Unknown]
  - Rash macular [Unknown]
  - Skin exfoliation [Unknown]
  - Condition aggravated [Unknown]
  - Therapeutic response decreased [Unknown]
